FAERS Safety Report 4335719-4 (Version None)
Quarter: 2004Q2

REPORT INFORMATION
  Report Type: 
  Country: None (occurrence: None)
  Receive Date: 20040406
  Receipt Date: 20040331
  Transmission Date: 20050107
  Serious: Yes (Death, Other)
  Sender: FDA-Public Use
  Company Number: 200415881BWH

PATIENT
  Age: 83 Year
  Sex: Female
  Weight: 69.8 kg

DRUGS (7)
  1. TRASYLOL [Suspect]
     Indication: CORONARY ARTERY SURGERY
     Dosage: 1990000 KIU, TOTAL DAILY, INTRAVENOUS
     Route: 042
     Dates: start: 20040121
  2. HEPARIN [Concomitant]
  3. BICARB, NA (SODIUM BICARBONATE) [Concomitant]
  4. INSULIN [Concomitant]
  5. MANNITOL [Concomitant]
  6. LR (LACTATED RINGER'S) [Concomitant]
  7. D5LRS [Concomitant]

REACTIONS (6)
  - CARDIAC FAILURE [None]
  - COAGULATION TIME SHORTENED [None]
  - CORONARY ARTERY THROMBOSIS [None]
  - HYPOTENSION [None]
  - INTRACARDIAC THROMBUS [None]
  - VENTRICULAR HYPERTROPHY [None]
